FAERS Safety Report 8076487-2 (Version None)
Quarter: 2011Q4

REPORT INFORMATION
  Report Type: 
  Country: None (occurrence: None)
  Receive Date: 20111221
  Receipt Date: 20110412
  Transmission Date: 20120403
  Serious: Yes (Hospitalization, Other)
  Sender: FDA-Public Use
  Company Number: PHHY2010US45332

PATIENT
  Sex: Male
  Weight: 70.3 kg

DRUGS (2)
  1. EXJADE [Suspect]
     Indication: SICKLE CELL ANAEMIA
     Dosage: 1000 MG, QD, ORAL ; 1000 MG, DAILY, ORAL
     Route: 048
     Dates: start: 20070207, end: 20100525
  2. EXJADE [Suspect]
     Indication: SICKLE CELL ANAEMIA
     Dosage: 1000 MG, QD, ORAL ; 1000 MG, DAILY, ORAL
     Route: 048
     Dates: end: 20100801

REACTIONS (3)
  - PAIN [None]
  - SICKLE CELL ANAEMIA WITH CRISIS [None]
  - SERUM FERRITIN INCREASED [None]
